FAERS Safety Report 10149353 (Version 6)
Quarter: 2016Q1

REPORT INFORMATION
  Report Type: Report from Study
  Country: US (occurrence: US)
  Receive Date: 20140502
  Receipt Date: 20160226
  Transmission Date: 20160525
  Serious: Yes (Other)
  Sender: FDA-Public Use
  Company Number: US-SA-2014SA055483

PATIENT
  Age: 61 Year
  Sex: Male

DRUGS (2)
  1. KYNAMRO [Suspect]
     Active Substance: MIPOMERSEN SODIUM
     Indication: TYPE IIA HYPERLIPIDAEMIA
     Route: 058
     Dates: start: 20140624
  2. KYNAMRO [Suspect]
     Active Substance: MIPOMERSEN SODIUM
     Indication: TYPE IIA HYPERLIPIDAEMIA
     Route: 058
     Dates: start: 201501

REACTIONS (4)
  - Injection site bruising [Unknown]
  - Liver function test abnormal [Not Recovered/Not Resolved]
  - Injection site reaction [Unknown]
  - Hernia repair [Unknown]

NARRATIVE: CASE EVENT DATE: 201501
